FAERS Safety Report 7341866-5 (Version None)
Quarter: 2011Q1

REPORT INFORMATION
  Report Type: 
  Country: None (occurrence: None)
  Receive Date: 20110309
  Receipt Date: 20110307
  Transmission Date: 20110831
  Serious: Yes (Other)
  Sender: FDA-Public Use
  Company Number: US-PFIZER INC-2011050054

PATIENT
  Age: 31 Year
  Sex: Female

DRUGS (1)
  1. ADVIL [Suspect]
     Dosage: UNK

REACTIONS (3)
  - OVERDOSE [None]
  - SOMNOLENCE [None]
  - TREMOR [None]
